FAERS Safety Report 13753218 (Version 1)
Quarter: 2017Q3

REPORT INFORMATION
  Report Type: Spontaneous
  Country: US (occurrence: US)
  Receive Date: 20170714
  Receipt Date: 20170714
  Transmission Date: 20171127
  Serious: No
  Sender: FDA-Public Use
  Company Number: US-IPSEN BIOPHARMACEUTICALS, INC.-2012-7670

PATIENT
  Age: 10 Year
  Sex: Male

DRUGS (5)
  1. INCRELEX [Suspect]
     Active Substance: MECASERMIN
     Indication: OFF LABEL USE
     Route: 058
     Dates: start: 20121013, end: 20121020
  2. PULMICORT TURBUHALER [Concomitant]
     Active Substance: BUDESONIDE
     Indication: PRODUCT USED FOR UNKNOWN INDICATION
     Dosage: NOT REPORTED
  3. MULTIVITAMIN [Concomitant]
     Active Substance: VITAMINS
     Indication: PRODUCT USED FOR UNKNOWN INDICATION
     Dosage: NOT REPORTED
  4. INCRELEX [Suspect]
     Active Substance: MECASERMIN
     Indication: PRIMARY INSULIN LIKE GROWTH FACTOR-1 DEFICIENCY
     Route: 058
     Dates: start: 20121021
  5. INCRELEX [Suspect]
     Active Substance: MECASERMIN
     Indication: GROWTH HORMONE DEFICIENCY
     Route: 058
     Dates: start: 20121005, end: 20121012

REACTIONS (5)
  - Injection site pain [Unknown]
  - Asthenia [Unknown]
  - Injection site urticaria [Unknown]
  - Injection site erythema [Unknown]
  - Influenza [None]

NARRATIVE: CASE EVENT DATE: 20121005
